FAERS Safety Report 17136849 (Version 6)
Quarter: 2020Q2

REPORT INFORMATION
  Report Type: Report from Study
  Country: PA (occurrence: PA)
  Receive Date: 20191210
  Receipt Date: 20200624
  Transmission Date: 20200713
  Serious: Yes (Other)
  Sender: FDA-Public Use
  Company Number: NVSC2019PA057690

PATIENT
  Age: 64 Year
  Sex: Male

DRUGS (2)
  1. GILENYA [Suspect]
     Active Substance: FINGOLIMOD HYDROCHLORIDE
     Dosage: 0.5 MG, QD
     Route: 048
     Dates: start: 20180215
  2. GILENYA [Suspect]
     Active Substance: FINGOLIMOD HYDROCHLORIDE
     Indication: MULTIPLE SCLEROSIS
     Dosage: 0.5 MG
     Route: 065
     Dates: start: 201801

REACTIONS (10)
  - Discomfort [Unknown]
  - Visual impairment [Unknown]
  - Decreased immune responsiveness [Not Recovered/Not Resolved]
  - Nervousness [Not Recovered/Not Resolved]
  - Cataract [Unknown]
  - Blood pressure increased [Unknown]
  - Mobility decreased [Not Recovered/Not Resolved]
  - Tension [Unknown]
  - Fear [Unknown]
  - Limb discomfort [Not Recovered/Not Resolved]

NARRATIVE: CASE EVENT DATE: 2018
